FAERS Safety Report 8595379-3 (Version None)
Quarter: 2012Q3

REPORT INFORMATION
  Report Type: 
  Country: None (occurrence: None)
  Receive Date: 20120815
  Receipt Date: 20120502
  Transmission Date: 20120928
  Serious: No
  Sender: FDA-Public Use
  Company Number: US-BRISTOL-MYERS SQUIBB COMPANY-16488546

PATIENT
  Age: 69 Year
  Sex: Female

DRUGS (3)
  1. ONGLYZA [Suspect]
     Dosage: DOSE INCREASED TO 10 MG
     Dates: start: 20110601, end: 20120201
  2. METFORMIN HCL [Suspect]
  3. JANUVIA [Suspect]

REACTIONS (1)
  - GLYCOSYLATED HAEMOGLOBIN INCREASED [None]
